FAERS Safety Report 6312092-3 (Version None)
Quarter: 2009Q3

REPORT INFORMATION
  Report Type: 
  Country: None (occurrence: None)
  Receive Date: 20090817
  Receipt Date: 20090729
  Transmission Date: 20100115
  Serious: Yes (Hospitalization)
  Sender: FDA-Public Use
  Company Number: IT-ASTRAZENECA-2009SE06470

PATIENT
  Age: 27801 Day
  Sex: Female

DRUGS (6)
  1. OMEPRAZOLE [Suspect]
     Route: 048
     Dates: start: 20050101
  2. TORADOL [Suspect]
     Route: 048
     Dates: start: 20090623, end: 20090723
  3. ADALAT [Suspect]
     Route: 048
     Dates: start: 20050101
  4. SOTALOL HYDROCHLORIDE [Concomitant]
     Route: 048
  5. ASPIRIN [Concomitant]
     Route: 048
  6. SELEPARINA [Concomitant]

REACTIONS (7)
  - ABDOMINAL PAIN UPPER [None]
  - FATIGUE [None]
  - HYPERHIDROSIS [None]
  - LOSS OF CONSCIOUSNESS [None]
  - NAUSEA [None]
  - PANCREATITIS ACUTE [None]
  - VISION BLURRED [None]
